FAERS Safety Report 7653859-9 (Version None)
Quarter: 2011Q3

REPORT INFORMATION
  Report Type: 
  Country: None (occurrence: None)
  Receive Date: 20110727
  Receipt Date: 20100813
  Transmission Date: 20111222
  Serious: Yes (Other)
  Sender: FDA-Public Use
  Company Number: OMPQ-PR-1008S-0734

PATIENT
  Age: 38 Year
  Sex: Male
  Weight: 88.905 kg

DRUGS (1)
  1. OMNIPAQUE 140 [Suspect]
     Indication: DYSPHAGIA
     Dosage: 100 ML, SINGLE DOSE, INTRAVENOUS
     Route: 042
     Dates: start: 20100811, end: 20100811

REACTIONS (5)
  - URTICARIA [None]
  - PRURITUS [None]
  - ERYTHEMA [None]
  - HYPERSENSITIVITY [None]
  - RASH [None]
